FAERS Safety Report 12176218 (Version 1)
Quarter: 2016Q1

REPORT INFORMATION
  Report Type: Spontaneous
  Country: US (occurrence: US)
  Receive Date: 20160314
  Receipt Date: 20160314
  Transmission Date: 20160526
  Serious: No
  Sender: FDA-Public Use
  Company Number: US-ACTAVIS-2015-16518

PATIENT

DRUGS (1)
  1. NORCO [Suspect]
     Active Substance: ACETAMINOPHEN\HYDROCODONE BITARTRATE
     Indication: PAIN MANAGEMENT
     Dosage: 2 DF, Q6H; ^TAKES 2 EVERY 6 HOURS^
     Route: 065
     Dates: start: 201507

REACTIONS (4)
  - Abdominal discomfort [Unknown]
  - Drug ineffective [Not Recovered/Not Resolved]
  - Somnolence [Unknown]
  - Headache [Unknown]

NARRATIVE: CASE EVENT DATE: 201507
